FAERS Safety Report 6064521-0 (Version None)
Quarter: 2009Q1

REPORT INFORMATION
  Report Type: 
  Country: None (occurrence: None)
  Receive Date: 20090204
  Receipt Date: 20090130
  Transmission Date: 20090719
  Serious: Yes (Hospitalization, Disabling)
  Sender: FDA-Public Use
  Company Number: A0745836A

PATIENT
  Age: 56 Year
  Sex: Female
  Weight: 106.8 kg

DRUGS (8)
  1. AVANDIA [Suspect]
     Indication: TYPE 2 DIABETES MELLITUS
     Dosage: 4MG TWICE PER DAY
     Route: 048
     Dates: start: 20020601, end: 20070901
  2. GLUCOPHAGE [Concomitant]
  3. METFORMIN [Concomitant]
  4. GLUCOTROL XL [Concomitant]
  5. JANUVIA [Concomitant]
  6. PREDNISOLONE [Concomitant]
  7. CELEBREX [Concomitant]
  8. ZOCOR [Concomitant]

REACTIONS (8)
  - ACUTE MYOCARDIAL INFARCTION [None]
  - CEREBROVASCULAR ACCIDENT [None]
  - CONVULSION [None]
  - IMPAIRED WORK ABILITY [None]
  - ISCHAEMIC STROKE [None]
  - MENTAL DISORDER [None]
  - MYOCARDIAL INFARCTION [None]
  - PAIN [None]
